FAERS Safety Report 8665128 (Version 3)
Quarter: 2012Q4

REPORT INFORMATION
  Report Type: 
  Country: AU (occurrence: AU)
  Receive Date: 20120716
  Receipt Date: 20121017
  Transmission Date: 20130627
  Serious: Yes (Other)
  Sender: FDA-Public Use
  Company Number: AU-009507513-1207AUS002273

PATIENT
  Age: 63 Year
  Sex: Female

DRUGS (2)
  1. FOSAMAX [Suspect]
     Dosage: UNK
     Route: 048
     Dates: start: 19990706
  2. CORTICOSTEROIDS (UNSPECIFIED) [Suspect]
     Indication: ASTHMA

REACTIONS (2)
  - Atypical femur fracture [Unknown]
  - Impaired healing [Unknown]
